FAERS Safety Report 9135402 (Version 1)
Quarter: 2013Q1

REPORT INFORMATION
  Report Type: Spontaneous
  Country: US (occurrence: US)
  Receive Date: 20130304
  Receipt Date: 20130304
  Transmission Date: 20140127
  Serious: No
  Sender: FDA-Public Use
  Company Number: US-ENDO PHARMACEUTICALS INC.-ENDC20110100

PATIENT
  Age: 43 None
  Sex: Female

DRUGS (1)
  1. ENDOCET [Suspect]
     Indication: PAIN
     Dosage: 50/1625 MG
     Route: 048
     Dates: start: 201102

REACTIONS (3)
  - Oedema [Recovering/Resolving]
  - Hepatic enzyme increased [Not Recovered/Not Resolved]
  - Hepatomegaly [Not Recovered/Not Resolved]
